FAERS Safety Report 8596933-5 (Version None)
Quarter: 2012Q3

REPORT INFORMATION
  Report Type: 
  Country: None (occurrence: None)
  Receive Date: 20120815
  Receipt Date: 20120803
  Transmission Date: 20120928
  Serious: Yes (Hospitalization)
  Sender: FDA-Public Use
  Company Number: US-AMGEN-US216204

PATIENT
  Age: 47 Year
  Sex: Male

DRUGS (13)
  1. CINACALCET HYDROCHLORIDE [Suspect]
     Indication: HYPERPARATHYROIDISM SECONDARY
     Dosage: UNK UNK, QD
     Route: 048
     Dates: start: 20070203, end: 20070319
  2. CLOPIDOGREL BISULFATE [Concomitant]
     Dosage: 75 MG, QD
     Route: 048
  3. INSULIN [Concomitant]
     Dosage: UNK UNK, UNK
     Route: 065
  4. CLONIDINE [Concomitant]
     Dosage: .3 MG, TID
     Route: 048
  5. ACETAMINOPHEN AND OXYCODONE HCL [Concomitant]
     Dosage: UNK UNK, UNK
     Route: 065
  6. ATORVASTATIN CALCIUM [Concomitant]
     Dosage: 40 MG, QD
     Route: 048
  7. SEVELAMER HCL [Concomitant]
     Dosage: 800 MG, TID
     Route: 048
  8. HEPARIN [Concomitant]
     Dosage: UNK UNK, UNK
     Route: 065
  9. LISINOPRIL [Concomitant]
     Dosage: 40 MG, QD
     Route: 048
  10. ASPIRIN [Concomitant]
     Dosage: 81 MG, QD
     Route: 048
  11. AMLODIPINE BESYLATE [Concomitant]
     Dosage: 10 MG, BID
     Route: 048
  12. ARANESP [Concomitant]
     Dosage: 60 A?G, QWK
     Route: 058
     Dates: start: 20070301
  13. ATENOLOL [Concomitant]
     Dosage: 25 MG, QD
     Route: 048

REACTIONS (3)
  - PERIPHERAL VASCULAR DISORDER [None]
  - ARTERIOSCLEROTIC GANGRENE [None]
  - PYREXIA [None]
